FAERS Safety Report 13660996 (Version 1)
Quarter: 2017Q2

REPORT INFORMATION
  Report Type: Spontaneous
  Country: US (occurrence: US)
  Receive Date: 20170616
  Receipt Date: 20170616
  Transmission Date: 20170830
  Serious: Yes (Hospitalization, Other)
  Sender: FDA-Public Use
  Company Number: US-HERITAGE PHARMACEUTICALS-2017HTG00151

PATIENT
  Age: 1 Year
  Sex: Female

DRUGS (10)
  1. RANOLAZINE. [Suspect]
     Active Substance: RANOLAZINE
     Dosage: 12 MG, 1X/DAY (Q6H)
     Route: 065
  2. RANOLAZINE. [Suspect]
     Active Substance: RANOLAZINE
     Dosage: 80 MG, 1X/DAY (Q6H)
     Route: 065
  3. RANOLAZINE. [Suspect]
     Active Substance: RANOLAZINE
     Dosage: 88 MG, 1X/DAY (Q6H)
     Route: 065
  4. RANOLAZINE. [Suspect]
     Active Substance: RANOLAZINE
     Dosage: 60 MG, 1X/DAY (Q6H)
     Route: 065
  5. RANOLAZINE. [Suspect]
     Active Substance: RANOLAZINE
     Dosage: 60 MG, 1X/DAY (Q6H)
     Route: 065
  6. PROPRANOLOL [Concomitant]
     Active Substance: PROPRANOLOL HYDROCHLORIDE
     Dosage: 3 MG/KG, 1X/DAY (EVERY 6 HOURS)
     Route: 065
  7. RANOLAZINE. [Suspect]
     Active Substance: RANOLAZINE
     Indication: TORSADE DE POINTES
     Dosage: 12 MG/KG, 1X/DAY (Q12H)
     Route: 065
  8. RANOLAZINE. [Suspect]
     Active Substance: RANOLAZINE
     Dosage: 70 MG, 1X/DAY (Q6H)
     Route: 065
  9. MEXILETINE [Concomitant]
     Active Substance: MEXILETINE
     Dosage: 30 MG/KG, 1X/DAY (EVERY 8 HOURS)
     Route: 065
  10. VERAPAMIL HYDROCHLORIDE. [Suspect]
     Active Substance: VERAPAMIL HYDROCHLORIDE
     Indication: POTENTIATING DRUG INTERACTION
     Dosage: 4 MG/KG, 1X/DAY (DIVIDED OVER EVERY 8 HOURS)
     Route: 065

REACTIONS (3)
  - Torsade de pointes [Recovered/Resolved]
  - Drug interaction [Recovered/Resolved]
  - Ventricular arrhythmia [Recovered/Resolved]
